FAERS Safety Report 7798857-X (Version None)
Quarter: 2011Q4

REPORT INFORMATION
  Report Type: 
  Country: None (occurrence: None)
  Receive Date: 20111005
  Receipt Date: 20111005
  Transmission Date: 20120403
  Serious: No
  Sender: FDA-Public Use
  Company Number: None

PATIENT
  Age: 57 Year
  Sex: Female

DRUGS (1)
  1. REBIF [Suspect]
     Dosage: 44MCG THW SUBCUTANEOUS
     Route: 058
     Dates: start: 20110722, end: 20110915

REACTIONS (3)
  - LIP SWELLING [None]
  - SWOLLEN TONGUE [None]
  - INFLUENZA LIKE ILLNESS [None]
